FAERS Safety Report 9943490 (Version 1)
Quarter: 2014Q1

REPORT INFORMATION
  Report Type: Report from Study
  Country: US (occurrence: US)
  Receive Date: 20140303
  Receipt Date: 20140303
  Transmission Date: 20141002
  Serious: No
  Sender: FDA-Public Use
  Company Number: US-ABBVIE-13P-163-1047836-00

PATIENT
  Age: 40 Year
  Sex: Male

DRUGS (5)
  1. HUMIRA [Suspect]
     Indication: CROHN^S DISEASE
     Dates: start: 20121212
  2. IBUPROFEN [Suspect]
     Indication: GASTROINTESTINAL PAIN
     Dates: end: 201302
  3. WELCHOL [Concomitant]
     Indication: GASTROINTESTINAL MOTILITY DISORDER
  4. PENTASA [Concomitant]
     Indication: PRODUCT USED FOR UNKNOWN INDICATION
  5. ADDERALL [Concomitant]
     Indication: ATTENTION DEFICIT/HYPERACTIVITY DISORDER

REACTIONS (2)
  - Rectal tenesmus [Not Recovered/Not Resolved]
  - Injection site pain [Not Recovered/Not Resolved]
